FAERS Safety Report 5487012-4 (Version None)
Quarter: 2007Q4

REPORT INFORMATION
  Report Type: 
  Country: None (occurrence: None)
  Receive Date: 20071012
  Receipt Date: 20071012
  Transmission Date: 20080405
  Serious: Yes (Other)
  Sender: FDA-Public Use
  Company Number: None

PATIENT
  Sex: Female
  Weight: 81.6475 kg

DRUGS (1)
  1. EVISTA [Suspect]
     Indication: OSTEOPENIA
     Dosage: 1 PILL   DAILY  PO
     Route: 048

REACTIONS (3)
  - INITIAL INSOMNIA [None]
  - INSOMNIA [None]
  - UNEVALUABLE EVENT [None]
